FAERS Safety Report 17798085 (Version 1)
Quarter: 2020Q2

REPORT INFORMATION
  Report Type: Spontaneous
  Country: US (occurrence: US)
  Receive Date: 20200518
  Receipt Date: 20200518
  Transmission Date: 20200714
  Serious: Yes (Hospitalization)
  Sender: FDA-Public Use
  Company Number: US-B.I. PHARMACEUTICALS,INC./RIDGEFIELD-2020-US-024816

PATIENT
  Age: 66 Year
  Sex: Male

DRUGS (7)
  1. NORCO [Concomitant]
     Active Substance: ACETAMINOPHEN\HYDROCODONE BITARTRATE
     Indication: PRODUCT USED FOR UNKNOWN INDICATION
     Route: 065
  2. PRADAXA [Suspect]
     Active Substance: DABIGATRAN ETEXILATE MESYLATE
     Indication: ANTICOAGULANT THERAPY
     Dosage: 150 MG TWICE A DAY
     Route: 065
     Dates: start: 2019
  3. POTASSIUM [Concomitant]
     Active Substance: POTASSIUM
     Indication: PRODUCT USED FOR UNKNOWN INDICATION
     Route: 065
  4. GABAPENTIN. [Concomitant]
     Active Substance: GABAPENTIN
     Indication: PRODUCT USED FOR UNKNOWN INDICATION
     Route: 065
  5. METFORMIN [Concomitant]
     Active Substance: METFORMIN HYDROCHLORIDE
     Indication: PRODUCT USED FOR UNKNOWN INDICATION
     Route: 065
  6. SOTALOL. [Concomitant]
     Active Substance: SOTALOL
     Indication: PRODUCT USED FOR UNKNOWN INDICATION
     Route: 065
  7. ATORVASTATIN [Concomitant]
     Active Substance: ATORVASTATIN
     Indication: PRODUCT USED FOR UNKNOWN INDICATION
     Route: 065

REACTIONS (2)
  - Blood urine present [Recovered/Resolved]
  - Nephrolithiasis [Not Recovered/Not Resolved]

NARRATIVE: CASE EVENT DATE: 201911
